FAERS Safety Report 15861686 (Version 8)
Quarter: 2021Q1

REPORT INFORMATION
  Report Type: Spontaneous
  Country: US (occurrence: US)
  Receive Date: 20190124
  Receipt Date: 20210311
  Transmission Date: 20210419
  Serious: Yes (Other)
  Sender: FDA-Public Use
  Company Number: US-PFIZER INC-2017108203

PATIENT
  Age: 67 Year
  Sex: Female
  Weight: 57 kg

DRUGS (10)
  1. LEVOTHYROXINE. [Concomitant]
     Active Substance: LEVOTHYROXINE
     Indication: HYPOTHYROIDISM
     Dosage: 100 UG, 1X/DAY (100MCG TABLET ONCE A DAY IN THE MORNING.)
     Dates: start: 2005
  2. PREMARIN [Suspect]
     Active Substance: ESTROGENS, CONJUGATED
     Indication: HORMONE REPLACEMENT THERAPY
     Dosage: 0.9 MG
     Route: 048
     Dates: start: 2006
  3. PREMARIN [Suspect]
     Active Substance: ESTROGENS, CONJUGATED
     Dosage: 0.9 MG, 3 TIMES A WEEK (MONDAY, WEDNESDAY, FRIDAY)
     Route: 048
  4. IBUPROFEN. [Concomitant]
     Active Substance: IBUPROFEN
     Dosage: UNK, AS NEEDED
  5. PREMARIN [Suspect]
     Active Substance: ESTROGENS, CONJUGATED
     Dosage: 0.9 MG, 5 TIMES A WEEK (ONCE DAILY X 5 DAYS, MONDAY TO FRIDAY)
     Route: 048
     Dates: start: 2019
  6. PREMARIN [Suspect]
     Active Substance: ESTROGENS, CONJUGATED
     Dosage: UNK, DAILY
     Route: 048
  7. PREMARIN [Suspect]
     Active Substance: ESTROGENS, CONJUGATED
     Dosage: A COUPLE OF A TIMES A WEEK
     Route: 048
  8. PREMARIN [Suspect]
     Active Substance: ESTROGENS, CONJUGATED
     Indication: HYSTERECTOMY
     Dosage: UNK, DAILY
     Route: 048
     Dates: start: 198106
  9. PREMARIN [Suspect]
     Active Substance: ESTROGENS, CONJUGATED
     Dosage: 0.9 MG, ALTERNATE DAY
     Route: 048
     Dates: start: 202002
  10. PREMARIN [Suspect]
     Active Substance: ESTROGENS, CONJUGATED
     Dosage: 0.9 MG, 1X/DAY
     Route: 048

REACTIONS (12)
  - Femur fracture [Recovered/Resolved]
  - Off label use [Unknown]
  - Body height decreased [Unknown]
  - Affective disorder [Unknown]
  - Libido decreased [Recovered/Resolved]
  - Intentional product use issue [Unknown]
  - Cystitis [Recovered/Resolved]
  - Inner ear disorder [Unknown]
  - Therapeutic response unexpected [Unknown]
  - Fall [Recovered/Resolved]
  - Hot flush [Unknown]
  - Nasopharyngitis [Recovered/Resolved]

NARRATIVE: CASE EVENT DATE: 2008
